FAERS Safety Report 14633528 (Version 1)
Quarter: 2018Q1

REPORT INFORMATION
  Report Type: Spontaneous
  Country: US (occurrence: US)
  Receive Date: 20180314
  Receipt Date: 20180314
  Transmission Date: 20180509
  Serious: No
  Sender: FDA-Public Use
  Company Number: US-009507513-1803USA005687

PATIENT
  Age: 72 Year
  Sex: Female

DRUGS (16)
  1. FLUTICASONE PROPIONATE. [Concomitant]
     Active Substance: FLUTICASONE PROPIONATE
  2. TYLENOL SINUS (ACETAMINOPHEN (+) PSEUDOEPHEDRINE HYDROCHLORIDE) [Concomitant]
  3. IRON (UNSPECIFIED) [Concomitant]
     Active Substance: IRON
  4. ALPRAZOLAM. [Concomitant]
     Active Substance: ALPRAZOLAM
  5. ASCORBIC ACID. [Concomitant]
     Active Substance: ASCORBIC ACID
  6. PEGINTRON [Suspect]
     Active Substance: PEGINTERFERON ALFA-2B
     Indication: NON-HODGKIN^S LYMPHOMA
     Dosage: 180 MCG, WEEKLY
     Route: 058
     Dates: start: 20180214
  7. DICYCLOMINE HYDROCHLORIDE. [Concomitant]
     Active Substance: DICYCLOMINE HYDROCHLORIDE
  8. TYLENOL [Concomitant]
     Active Substance: ACETAMINOPHEN
  9. TRIAMCINOLONE ACETONIDE. [Concomitant]
     Active Substance: TRIAMCINOLONE ACETONIDE
  10. ASPIRIN. [Concomitant]
     Active Substance: ASPIRIN
  11. NEXIUM I.V. [Concomitant]
     Active Substance: ESOMEPRAZOLE SODIUM
  12. ZIDOVUDINE. [Concomitant]
     Active Substance: ZIDOVUDINE
  13. HYDROXYZINE HYDROCHLORIDE. [Concomitant]
     Active Substance: HYDROXYZINE HYDROCHLORIDE
  14. CENTRUM SILVER [Concomitant]
     Active Substance: MINERALS\VITAMINS
     Dosage: 50+ WOMEN
  15. CRESTOR [Concomitant]
     Active Substance: ROSUVASTATIN CALCIUM
  16. HYDROCHLOROTHIAZIDE. [Concomitant]
     Active Substance: HYDROCHLOROTHIAZIDE

REACTIONS (3)
  - Fatigue [Unknown]
  - Headache [Unknown]
  - Product use in unapproved indication [Unknown]

NARRATIVE: CASE EVENT DATE: 2018
